FAERS Safety Report 6688538-8 (Version None)
Quarter: 2010Q2

REPORT INFORMATION
  Report Type: 
  Country: None (occurrence: None)
  Receive Date: 20100420
  Receipt Date: 20100416
  Transmission Date: 20101027
  Serious: Yes (Other)
  Sender: FDA-Public Use
  Company Number: A0855720A

PATIENT
  Age: 43 Year
  Sex: Female

DRUGS (1)
  1. NICODERM [Suspect]
     Indication: SMOKING CESSATION THERAPY
     Route: 062

REACTIONS (1)
  - MYOCARDIAL INFARCTION [None]
